FAERS Safety Report 8879672 (Version 6)
Quarter: 2014Q3

REPORT INFORMATION
  Report Type: Spontaneous
  Country: JP (occurrence: JP)
  Receive Date: 20121101
  Receipt Date: 20140711
  Transmission Date: 20150326
  Serious: Yes (Hospitalization)
  Sender: FDA-Public Use
  Company Number: JP-009507513-1210JPN014193

PATIENT
  Age: 74 Year
  Sex: Female

DRUGS (6)
  1. PEON [Concomitant]
     Active Substance: ZALTOPROFEN
     Dosage: 9 DF/DAY
     Route: 048
  2. METHYCOBAL [Concomitant]
     Active Substance: METHYLCOBALAMIN
  3. OPALMON [Concomitant]
     Active Substance: LIMAPROST
     Dosage: 15 MICROGRAMG/DAY
     Route: 048
  4. MOHRUS [Concomitant]
     Active Substance: KETOPROFEN
     Dosage: 20 MILLIGRAM/DAY; ROUTE: TD
  5. ONEALFA [Concomitant]
     Active Substance: ALFACALCIDOL
     Indication: OSTEOPOROSIS
     Dosage: 1 MICROGRAM/DAY
     Route: 048
  6. BONALON [Suspect]
     Active Substance: ALENDRONATE SODIUM
     Indication: OSTEOPOROSIS
     Dosage: 35 MG, QW
     Route: 048
     Dates: end: 201203

REACTIONS (2)
  - Atypical femur fracture [Recovered/Resolved]
  - Atypical femur fracture [Recovered/Resolved]

NARRATIVE: CASE EVENT DATE: 20120322
